FAERS Safety Report 6517538-3 (Version None)
Quarter: 2009Q4

REPORT INFORMATION
  Report Type: 
  Country: None (occurrence: None)
  Receive Date: 20091224
  Receipt Date: 20091210
  Transmission Date: 20100525
  Serious: Yes (Hospitalization, Other)
  Sender: FDA-Public Use
  Company Number: ES-PFIZER INC-2009308312

PATIENT
  Age: 87 Year
  Sex: Female

DRUGS (4)
  1. ALDACTONE [Suspect]
     Indication: CARDIAC FAILURE
     Dosage: 50 MG, DAILY
     Route: 048
     Dates: start: 20090911, end: 20091016
  2. ENALAPRIL MALEATE [Interacting]
     Dosage: 20 MG, DAILY
     Route: 048
     Dates: start: 20080101
  3. FUROSEMIDE [Concomitant]
  4. DIGOXIN [Concomitant]
     Dosage: 80 MG, DAILY
     Route: 048

REACTIONS (3)
  - DRUG INTERACTION [None]
  - ELECTROCARDIOGRAM ABNORMAL [None]
  - HYPERKALAEMIA [None]
